FAERS Safety Report 8072411-7 (Version None)
Quarter: 2011Q4

REPORT INFORMATION
  Report Type: 
  Country: None (occurrence: None)
  Receive Date: 20111221
  Receipt Date: 20110913
  Transmission Date: 20120403
  Serious: Yes (Death)
  Sender: FDA-Public Use
  Company Number: PHEH2011US04188

PATIENT
  Age: 81 Year
  Sex: Female

DRUGS (1)
  1. EXJADE [Suspect]
     Indication: MYELODYSPLASTIC SYNDROME
     Dosage: 500 MG
     Dates: start: 20090201, end: 20090301

REACTIONS (1)
  - ACUTE MYELOID LEUKAEMIA [None]
